FAERS Safety Report 8537297-2 (Version None)
Quarter: 2012Q3

REPORT INFORMATION
  Report Type: 
  Country: None (occurrence: None)
  Receive Date: 20120725
  Receipt Date: 20120716
  Transmission Date: 20120928
  Serious: Yes (Other)
  Sender: FDA-Public Use
  Company Number: US-JNJFOC-20120708281

PATIENT
  Sex: Male

DRUGS (5)
  1. CARBAMAZEPINE [Interacting]
     Indication: PRODUCT USED FOR UNKNOWN INDICATION
     Route: 065
  2. TOPAMAX [Suspect]
     Indication: PRODUCT USED FOR UNKNOWN INDICATION
     Route: 048
  3. TRACLEER [Interacting]
     Indication: PULMONARY HYPERTENSION
     Route: 048
  4. TRACLEER [Interacting]
     Route: 048
     Dates: start: 20120215
  5. COUMADIN [Concomitant]
     Route: 065

REACTIONS (4)
  - CONCOMITANT DISEASE AGGRAVATED [None]
  - CONVULSION [None]
  - PRODUCT QUALITY ISSUE [None]
  - DRUG INTERACTION [None]
